FAERS Safety Report 18852578 (Version 1)
Quarter: 2021Q1

REPORT INFORMATION
  Report Type: Spontaneous
  Country: US (occurrence: US)
  Receive Date: 20210204
  Receipt Date: 20210204
  Transmission Date: 20210420
  Serious: Yes (Hospitalization)
  Sender: FDA-Public Use
  Company Number: None

PATIENT
  Age: 73 Year
  Sex: Male
  Weight: 82.7 kg

DRUGS (2)
  1. RUCAPARIB [Suspect]
     Active Substance: RUCAPARIB
     Indication: PROSTATE CANCER METASTATIC
     Route: 048
     Dates: start: 20200608, end: 20200612
  2. COPANLISIB. [Suspect]
     Active Substance: COPANLISIB
     Indication: PROSTATE CANCER METASTATIC
     Route: 042
     Dates: start: 20200608, end: 20200608

REACTIONS (4)
  - Urinary incontinence [None]
  - Fatigue [None]
  - Rash maculo-papular [None]
  - Dehydration [None]

NARRATIVE: CASE EVENT DATE: 20200616
